FAERS Safety Report 10479090 (Version 2)
Quarter: 2014Q4

REPORT INFORMATION
  Report Type: Report from Study
  Country: BR (occurrence: BR)
  Receive Date: 20140926
  Receipt Date: 20141111
  Transmission Date: 20150528
  Serious: Yes (Hospitalization, Other)
  Sender: FDA-Public Use
  Company Number: PHHY2014BR126286

PATIENT
  Age: 79 Year
  Sex: Male
  Weight: 57 kg

DRUGS (2)
  1. EXELON PATCH [Suspect]
     Active Substance: RIVASTIGMINE
     Indication: DEMENTIA
     Dosage: 1 DF, QD (REPORTED AS 4.1)
     Route: 062
     Dates: start: 201310, end: 201405
  2. EXELON PATCH [Suspect]
     Active Substance: RIVASTIGMINE
     Dosage: 9.5 MG (10 CM2), QD
     Route: 062
     Dates: start: 201405

REACTIONS (5)
  - Renal disorder [Recovered/Resolved]
  - Pneumonia [Recovered/Resolved]
  - Erythema [Recovering/Resolving]
  - Application site hypersensitivity [Unknown]
  - Application site mass [Unknown]

NARRATIVE: CASE EVENT DATE: 201407
